FAERS Safety Report 6100142-9 (Version None)
Quarter: 2009Q1

REPORT INFORMATION
  Report Type: 
  Country: None (occurrence: None)
  Receive Date: 20090226
  Receipt Date: 20090213
  Transmission Date: 20090719
  Serious: Yes (Other)
  Sender: FDA-Public Use
  Company Number: 2009S1002858

PATIENT
  Age: 49 Year
  Sex: Female

DRUGS (2)
  1. AMITRIPTYLINE HYDROCHLORIDE [Suspect]
     Indication: DEPRESSION
     Dosage: 25 MG; ORAL
     Route: 048
     Dates: start: 20090130
  2. KELTICAN [Concomitant]

REACTIONS (3)
  - AGITATION [None]
  - DYSPNOEA [None]
  - PALPITATIONS [None]
